FAERS Safety Report 22779756 (Version 3)
Quarter: 2023Q4

REPORT INFORMATION
  Report Type: Report from Study
  Country: US (occurrence: US)
  Receive Date: 20230803
  Receipt Date: 20231025
  Transmission Date: 20240109
  Serious: Yes (Other)
  Sender: FDA-Public Use
  Company Number: US-ABBVIE-5351948

PATIENT
  Age: 64 Year
  Sex: Female
  Weight: 99.33 kg

DRUGS (1)
  1. RINVOQ [Suspect]
     Active Substance: UPADACITINIB
     Indication: Rheumatoid arthritis
     Route: 048
     Dates: start: 20220503

REACTIONS (6)
  - Retinal detachment [Unknown]
  - Eye pain [Unknown]
  - Visual impairment [Unknown]
  - Metamorphopsia [Unknown]
  - Sjogren^s syndrome [Unknown]
  - Glaucoma [Unknown]

NARRATIVE: CASE EVENT DATE: 20230702
